FAERS Safety Report 25450391 (Version 1)
Quarter: 2025Q2

REPORT INFORMATION
  Report Type: Spontaneous
  Country: CN (occurrence: CN)
  Receive Date: 20250618
  Receipt Date: 20250618
  Transmission Date: 20250717
  Serious: Yes (Disabling)
  Sender: BAXTER
  Company Number: None

PATIENT
  Age: 53 Year
  Sex: Female
  Weight: 50 kg

DRUGS (17)
  1. CYCLOPHOSPHAMIDE [Suspect]
     Active Substance: CYCLOPHOSPHAMIDE
     Indication: Breast cancer female
     Dosage: 0.78 G, QD
     Route: 041
     Dates: start: 20250515, end: 20250515
  2. CYCLOPHOSPHAMIDE [Suspect]
     Active Substance: CYCLOPHOSPHAMIDE
     Dosage: 0.78 G, QD, CHEMOTHERAPY WAS PERFORMED WITH THE SAME REGIMEN AS BEFORE
     Route: 041
     Dates: start: 20250607, end: 20250607
  3. DOXORUBICIN HYDROCHLORIDE [Suspect]
     Active Substance: DOXORUBICIN HYDROCHLORIDE
     Indication: Breast cancer female
     Dosage: 50 MG, QD
     Route: 041
     Dates: start: 20250515, end: 20250515
  4. DOXORUBICIN HYDROCHLORIDE [Suspect]
     Active Substance: DOXORUBICIN HYDROCHLORIDE
     Dosage: 50 MG, QD, CHEMOTHERAPY WAS PERFORMED WITH THE SAME REGIMEN AS BEFORE
     Route: 041
     Dates: start: 20250607, end: 20250607
  5. LEUCOGEN [Suspect]
     Active Substance: LEUCOGEN
     Indication: Breast cancer female
     Dosage: 20 MG, TID
     Route: 048
     Dates: start: 20250517, end: 20250601
  6. LEUCOGEN [Suspect]
     Active Substance: LEUCOGEN
     Indication: Myelosuppression
  7. OMEPRAZOLE [Suspect]
     Active Substance: OMEPRAZOLE
     Indication: Breast cancer female
     Dosage: 20 MG, BID, ENTERIC CAPSULES
     Route: 048
     Dates: start: 20250517, end: 20250530
  8. OMEPRAZOLE [Suspect]
     Active Substance: OMEPRAZOLE
     Indication: Gastrointestinal disorder prophylaxis
  9. OMEPRAZOLE [Suspect]
     Active Substance: OMEPRAZOLE
     Indication: Antiemetic supportive care
  10. SODIUM CHLORIDE [Suspect]
     Active Substance: SODIUM CHLORIDE
     Indication: Medication dilution
     Dosage: 100 ML, QD, IVGTT ONCE WITH CYCLOPHOSPHAMIDE
     Route: 041
     Dates: start: 20250515, end: 20250515
  11. SODIUM CHLORIDE [Suspect]
     Active Substance: SODIUM CHLORIDE
     Dosage: 100 ML, QD, IVGTT ONCE, CHEMOTHERAPY WAS PERFORMED WITH THE SAME REGIMEN AS BEFORE WITH CYCLOPHOSPHA
     Route: 041
     Dates: start: 20250607, end: 20250607
  12. ONDANSETRON HYDROCHLORIDE [Suspect]
     Active Substance: ONDANSETRON HYDROCHLORIDE
     Indication: Breast cancer female
     Dosage: 4 MG, BID, Q12H
     Route: 048
     Dates: start: 20250517, end: 20250528
  13. ONDANSETRON HYDROCHLORIDE [Suspect]
     Active Substance: ONDANSETRON HYDROCHLORIDE
     Indication: Gastrointestinal disorder prophylaxis
  14. ONDANSETRON HYDROCHLORIDE [Suspect]
     Active Substance: ONDANSETRON HYDROCHLORIDE
     Indication: Antiemetic supportive care
  15. DEXTROSE [Suspect]
     Active Substance: DEXTROSE MONOHYDRATE
     Indication: Medication dilution
     Dosage: 500 ML, QD, IVGTT ONCE WITH DOXORUBICIN LIPOSOME
     Route: 041
     Dates: start: 20250515, end: 20250515
  16. DEXTROSE [Suspect]
     Active Substance: DEXTROSE MONOHYDRATE
     Dosage: 500 ML, QD, IVGTT ONCE, CHEMOTHERAPY WAS PERFORMED WITH THE SAME REGIMEN AS BEFORE
     Route: 041
     Dates: start: 20250607, end: 20250607
  17. SILIBININ [Concomitant]
     Active Substance: SILIBININ
     Indication: Hepatic enzyme increased
     Dosage: 70 MG, TID
     Route: 048
     Dates: start: 20250517

REACTIONS (1)
  - Hepatic enzyme increased [Recovering/Resolving]

NARRATIVE: CASE EVENT DATE: 20250528
